FAERS Safety Report 12921786 (Version 1)
Quarter: 2016Q4

REPORT INFORMATION
  Report Type: Spontaneous
  Country: AT (occurrence: AT)
  Receive Date: 20161108
  Receipt Date: 20161108
  Transmission Date: 20170207
  Serious: Yes (Hospitalization, Other)
  Sender: FDA-Public Use
  Company Number: AT-IMPAX LABORATORIES, INC-2016-IPXL-01491

PATIENT
  Age: 41 Year
  Sex: Female

DRUGS (4)
  1. FLUDROCORTISONE ACETATE. [Suspect]
     Active Substance: FLUDROCORTISONE ACETATE
     Indication: ADRENAL INSUFFICIENCY
     Dosage: 0.3 MG, 1 /DAY
     Route: 065
     Dates: start: 20141121
  2. FLUDROCORTISONE ACETATE. [Suspect]
     Active Substance: FLUDROCORTISONE ACETATE
     Dosage: 0.05 MG, 1 /DAY
     Route: 065
  3. LEVOTHYROXINE. [Concomitant]
     Active Substance: LEVOTHYROXINE
     Indication: AUTOIMMUNE THYROIDITIS
     Dosage: 50 ?G, 1 /DAY
     Route: 065
     Dates: start: 2011
  4. HYDROCORTONE [Concomitant]
     Active Substance: HYDROCORTISONE
     Indication: ADRENAL INSUFFICIENCY
     Dosage: 20 MG, 1 /DAY
     Route: 065
     Dates: start: 20141121

REACTIONS (7)
  - Cardiac failure [Not Recovered/Not Resolved]
  - Overdose [Unknown]
  - Stress cardiomyopathy [Recovered/Resolved]
  - Facial bones fracture [Unknown]
  - Weight increased [Unknown]
  - Concussion [Unknown]
  - Circulatory collapse [Recovered/Resolved]
